FAERS Safety Report 5336807-6 (Version None)
Quarter: 2007Q2

REPORT INFORMATION
  Report Type: 
  Country: None (occurrence: None)
  Receive Date: 20070529
  Receipt Date: 20070517
  Transmission Date: 20071010
  Serious: Yes (Other)
  Sender: FDA-Public Use
  Company Number: PHBS2007JP07163

PATIENT
  Age: 54 Year
  Sex: Male

DRUGS (2)
  1. DIOVAN [Suspect]
     Indication: HYPERTENSION
     Dosage: 40 MG/DAY
     Route: 048
     Dates: start: 20070401
  2. ADALAT [Concomitant]

REACTIONS (5)
  - ABDOMINAL PAIN LOWER [None]
  - BENIGN PROSTATIC HYPERPLASIA [None]
  - MICTURITION DISORDER [None]
  - POLLAKIURIA [None]
  - RECTAL NEOPLASM [None]
